FAERS Safety Report 5443815-3 (Version None)
Quarter: 2007Q3

REPORT INFORMATION
  Report Type: 
  Country: None (occurrence: None)
  Receive Date: 20070905
  Receipt Date: 20070829
  Transmission Date: 20080115
  Serious: Yes (Disabling, Other)
  Sender: FDA-Public Use
  Company Number: JP-PFIZER INC-2007067648

PATIENT
  Sex: Male
  Weight: 76.6 kg

DRUGS (6)
  1. ATARAX [Suspect]
     Indication: PREMEDICATION
     Dosage: DAILY DOSE:50MG
     Route: 030
     Dates: start: 20070726, end: 20070726
  2. FOY [Suspect]
     Indication: PANCREATITIS
     Dosage: DAILY DOSE:300MG-FREQ:QD
     Route: 042
     Dates: start: 20070727, end: 20070729
  3. GLUCOSALINA [Concomitant]
     Route: 042
     Dates: start: 20070726, end: 20070727
  4. PENTCILLIN [Concomitant]
     Route: 042
  5. ATROPINE SULFATE [Concomitant]
     Indication: PREMEDICATION
     Route: 030
  6. BUPRENORPHINE HCL [Concomitant]
     Indication: ABDOMINAL PAIN
     Route: 042
     Dates: start: 20070727, end: 20070728

REACTIONS (2)
  - NEURALGIA [None]
  - OEDEMA PERIPHERAL [None]
